FAERS Safety Report 5590185-6 (Version None)
Quarter: 2008Q1

REPORT INFORMATION
  Report Type: 
  Country: None (occurrence: None)
  Receive Date: 20080114
  Receipt Date: 20080107
  Transmission Date: 20080703
  Serious: Yes (Hospitalization)
  Sender: FDA-Public Use
  Company Number: US-ASTRAZENECA-2008AC00060

PATIENT
  Age: 29 Year
  Sex: Male

DRUGS (3)
  1. QUETIAPINE [Suspect]
     Route: 048
  2. LAMOTRIGINE [Suspect]
     Route: 048
  3. ETHANOL [Suspect]
     Route: 048

REACTIONS (9)
  - ALCOHOL POISONING [None]
  - BLOOD PRESSURE DIASTOLIC DECREASED [None]
  - COMA [None]
  - FLUSHING [None]
  - GRAND MAL CONVULSION [None]
  - HEART RATE INCREASED [None]
  - MULTIPLE DRUG OVERDOSE [None]
  - RHABDOMYOLYSIS [None]
  - WHITE BLOOD CELL COUNT INCREASED [None]
